FAERS Safety Report 8682386 (Version 2)
Quarter: 2012Q4

REPORT INFORMATION
  Report Type: 
  Country: US (occurrence: US)
  Receive Date: 20120725
  Receipt Date: 20120828
  Transmission Date: 20130627
  Serious: No
  Sender: FDA-Public Use
  Company Number: US-TEVA-349663USA

PATIENT
  Age: 53 Year
  Sex: Female
  Weight: 54.93 kg

DRUGS (2)
  1. COPAXONE [Suspect]
     Indication: MULTIPLE SCLEROSIS
     Dosage: 20 Milligram Daily;
     Route: 058
     Dates: start: 201111
  2. INTEGRA-F [Concomitant]
     Indication: ANAEMIA
     Dosage: 1 Tablet Daily;
     Route: 048

REACTIONS (2)
  - Pruritus [Not Recovered/Not Resolved]
  - Injection site urticaria [Not Recovered/Not Resolved]
